FAERS Safety Report 4521862-3 (Version None)
Quarter: 2004Q4

REPORT INFORMATION
  Report Type: 
  Country: None (occurrence: None)
  Receive Date: 20041207
  Receipt Date: 20041122
  Transmission Date: 20050328
  Serious: No
  Sender: FDA-Public Use
  Company Number: DSA_81151_2004

PATIENT
  Age: 31 Year
  Sex: Female
  Weight: 49.8957 kg

DRUGS (4)
  1. XYREM [Suspect]
     Indication: CATAPLEXY
     Dosage: 15 G NIGHTLY PO
     Route: 048
     Dates: start: 20021127
  2. XYREM [Suspect]
     Indication: NARCOLEPSY
     Dosage: 15 G NIGHTLY PO
     Route: 048
     Dates: start: 20021127
  3. AMBIEN [Suspect]
     Indication: SLEEP DISORDER
     Dosage: 15 MG NIGHTLY PO
     Route: 048
     Dates: start: 20021201
  4. CONCERTA [Concomitant]

REACTIONS (2)
  - BONE DISORDER [None]
  - GINGIVAL DISORDER [None]
